FAERS Safety Report 4788249-X (Version None)
Quarter: 2005Q4

REPORT INFORMATION
  Report Type: 
  Country: None (occurrence: None)
  Receive Date: 20051003
  Receipt Date: 20050919
  Transmission Date: 20060501
  Serious: Yes (Hospitalization)
  Sender: FDA-Public Use
  Company Number: ERD2002A00124

PATIENT
  Age: 63 Year
  Sex: Male

DRUGS (11)
  1. PIOGLITAZONE HCL [Suspect]
     Indication: DIABETES MELLITUS NON-INSULIN-DEPENDENT
     Dosage: 45 MG ORAL
     Route: 048
     Dates: start: 20020214
  2. BISOPROLOL (BISOPROLOL) [Concomitant]
  3. NITRATE [Concomitant]
  4. DILTIAZEM [Concomitant]
  5. ENALAPRIL MALEATE [Concomitant]
  6. FUROSEMIDE [Concomitant]
  7. ASPIRIN [Concomitant]
  8. BICALUTAMID (BICALUTAMIDE) [Concomitant]
  9. POTASSIUM (POTASSIUM) [Concomitant]
  10. ACETAMINOPHEN [Concomitant]
  11. METOCLOPRAMID (METOCLOPRAMIDE) [Concomitant]

REACTIONS (3)
  - ACUTE CORONARY SYNDROME [None]
  - CORONARY ARTERY STENOSIS [None]
  - MYOCARDIAL INFARCTION [None]
